FAERS Safety Report 17734640 (Version 3)
Quarter: 2020Q3

REPORT INFORMATION
  Report Type: Report from Study
  Country: US (occurrence: US)
  Receive Date: 20200501
  Receipt Date: 20200730
  Transmission Date: 20201102
  Serious: Yes (Other)
  Sender: FDA-Public Use
  Company Number: US-BIOGEN-2014BI054641

PATIENT
  Sex: Female

DRUGS (1)
  1. TECFIDERA [Suspect]
     Active Substance: DIMETHYL FUMARATE
     Indication: MULTIPLE SCLEROSIS
     Route: 048
     Dates: start: 20150116

REACTIONS (6)
  - Eye oedema [Unknown]
  - Cataract [Recovered/Resolved]
  - Iritis [Unknown]
  - Multiple sclerosis [Recovered/Resolved]
  - Uveitis [Recovered/Resolved]
  - Blindness unilateral [Unknown]
